FAERS Safety Report 24947430 (Version 1)
Quarter: 2025Q1

REPORT INFORMATION
  Report Type: Spontaneous
  Country: US (occurrence: US)
  Receive Date: 20250210
  Receipt Date: 20250210
  Transmission Date: 20250408
  Serious: Yes (Hospitalization)
  Sender: UPSHER SMITH LABORATORIES
  Company Number: US-UPSHER-SMITH LABORATORIES, LLC-20250200494

PATIENT
  Sex: Male

DRUGS (1)
  1. VIGADRONE [Suspect]
     Active Substance: VIGABATRIN
     Indication: Infantile spasms
     Route: 048
     Dates: start: 20241214

REACTIONS (4)
  - General physical health deterioration [Not Recovered/Not Resolved]
  - Petechiae [Not Recovered/Not Resolved]
  - Lethargy [Not Recovered/Not Resolved]
  - Amino acid level increased [Not Recovered/Not Resolved]
